FAERS Safety Report 24604261 (Version 1)
Quarter: 2024Q4

REPORT INFORMATION
  Report Type: Spontaneous
  Country: US (occurrence: US)
  Receive Date: 20241111
  Receipt Date: 20241111
  Transmission Date: 20250115
  Serious: No
  Sender: ABBVIE
  Company Number: US-ABBVIE-5994867

PATIENT
  Age: 40 Year

DRUGS (1)
  1. BOTOX COSMETIC [Suspect]
     Active Substance: ONABOTULINUMTOXINA
     Indication: Skin cosmetic procedure
     Dosage: FREQUENCY:1 ONCE
     Route: 065
     Dates: start: 20241016, end: 20241016

REACTIONS (1)
  - Poor quality product administered [Not Recovered/Not Resolved]
